FAERS Safety Report 15227520 (Version 3)
Quarter: 2018Q3

REPORT INFORMATION
  Report Type: Spontaneous
  Country: JP (occurrence: JP)
  Receive Date: 20180801
  Receipt Date: 20180924
  Transmission Date: 20181010
  Serious: Yes (Hospitalization, Other)
  Sender: FDA-Public Use
  Company Number: JP-PFIZER INC-2018300030

PATIENT
  Age: 81 Year
  Sex: Female
  Weight: 53.7 kg

DRUGS (3)
  1. ASUNAPREVIR [Interacting]
     Active Substance: ASUNAPREVIR
     Indication: LIVER DISORDER
     Dosage: UNK
     Route: 048
     Dates: start: 201601
  2. DACLATASVIR. [Interacting]
     Active Substance: DACLATASVIR
     Indication: LIVER DISORDER
     Dosage: UNK
     Route: 048
     Dates: start: 201601
  3. AMLODIPINE BESILATE [Suspect]
     Active Substance: AMLODIPINE BESYLATE
     Dosage: 5 MG, UNK

REACTIONS (2)
  - Drug interaction [Unknown]
  - Synovitis [Recovering/Resolving]
